FAERS Safety Report 23044714 (Version 1)
Quarter: 2023Q4

REPORT INFORMATION
  Report Type: Spontaneous
  Country: GB (occurrence: GB)
  Receive Date: 20231009
  Receipt Date: 20231009
  Transmission Date: 20240110
  Serious: Yes (Hospitalization, Disabling, Other)
  Sender: FDA-Public Use
  Company Number: None

PATIENT
  Age: 75 Year
  Sex: Female
  Weight: 54 kg

DRUGS (12)
  1. ZOLEDRONIC ACID [Suspect]
     Active Substance: ZOLEDRONIC ACID
     Indication: Product used for unknown indication
     Dates: start: 20230909
  2. ATORVASTATIN [Concomitant]
     Active Substance: ATORVASTATIN
  3. CARBOCYSTEINE [Concomitant]
     Active Substance: CARBOCYSTEINE
  4. FOLIC ACID [Concomitant]
     Active Substance: FOLIC ACID
  5. FUROSEMIDE [Concomitant]
     Active Substance: FUROSEMIDE
  6. HYDROXYCHLOROQUINE [Concomitant]
     Active Substance: HYDROXYCHLOROQUINE
  7. LANSOPRAZOLE [Concomitant]
     Active Substance: LANSOPRAZOLE
  8. METHOTREXATE [Concomitant]
     Active Substance: METHOTREXATE
  9. PREDNISOLONE [Concomitant]
     Active Substance: PREDNISOLONE
  10. RIVAROXABAN [Concomitant]
     Active Substance: RIVAROXABAN
  11. ALBUTEROL [Concomitant]
     Active Substance: ALBUTEROL
  12. BECLOMETASONE, FORMOTEROL, GLYCOPYRRONIUM [Concomitant]

REACTIONS (1)
  - Chondrocalcinosis [Recovered/Resolved]

NARRATIVE: CASE EVENT DATE: 20230909
